FAERS Safety Report 25624386 (Version 3)
Quarter: 2025Q3

REPORT INFORMATION
  Report Type: Spontaneous
  Country: CA (occurrence: CA)
  Receive Date: 20250730
  Receipt Date: 20250807
  Transmission Date: 20251021
  Serious: Yes (Other)
  Sender: PFIZER
  Company Number: CA-PFIZER INC-PV202500069143

PATIENT
  Age: 60 Year
  Sex: Male

DRUGS (4)
  1. BRAFTOVI [Suspect]
     Active Substance: ENCORAFENIB
     Indication: Colon cancer metastatic
     Dosage: 300 MG, DAILY
     Route: 048
     Dates: start: 20250707
  2. BRAFTOVI [Suspect]
     Active Substance: ENCORAFENIB
     Dosage: 75 MG, DAILY (DOSE CHANGED TO 225 MG)
     Route: 048
     Dates: start: 20250716
  3. BRAFTOVI [Suspect]
     Active Substance: ENCORAFENIB
     Dosage: 225 MG, DAILY
     Route: 048
     Dates: start: 20250725
  4. BRAFTOVI [Suspect]
     Active Substance: ENCORAFENIB
     Dosage: 225 MG, DAILY  TAKE 3 CAPSULES (225MG TOTAL) BY MOUTH 1 TIME EACH DAY
     Route: 048
     Dates: start: 20250801

REACTIONS (1)
  - Pancreatitis [Unknown]
